FAERS Safety Report 5973872-7 (Version None)
Quarter: 2008Q4

REPORT INFORMATION
  Report Type: 
  Country: None (occurrence: None)
  Receive Date: 20081201
  Receipt Date: 20080923
  Transmission Date: 20090506
  Serious: No
  Sender: FDA-Public Use
  Company Number: US-AMGEN-KDL304006

PATIENT
  Sex: Female
  Weight: 107.1 kg

DRUGS (4)
  1. ENBREL [Suspect]
     Indication: ANKYLOSING SPONDYLITIS
     Route: 058
     Dates: start: 20080814
  2. ACTOS [Concomitant]
  3. CELEBREX [Concomitant]
  4. METFORMIN HCL [Concomitant]
     Route: 048

REACTIONS (19)
  - CONTUSION [None]
  - DRUG INEFFECTIVE [None]
  - DRY SKIN [None]
  - ECZEMA [None]
  - FOLLICULITIS [None]
  - INJECTION SITE DISCOLOURATION [None]
  - INJECTION SITE ECZEMA [None]
  - INJECTION SITE ERYTHEMA [None]
  - INJECTION SITE HAEMATOMA [None]
  - INJECTION SITE PAIN [None]
  - INJECTION SITE PRURITUS [None]
  - INJECTION SITE SWELLING [None]
  - INJECTION SITE WARMTH [None]
  - INSOMNIA [None]
  - MUSCULOSKELETAL PAIN [None]
  - PAIN IN EXTREMITY [None]
  - PRURITUS [None]
  - STRESS [None]
  - TINEA PEDIS [None]
